FAERS Safety Report 7499641-7 (Version None)
Quarter: 2011Q2

REPORT INFORMATION
  Report Type: 
  Country: None (occurrence: None)
  Receive Date: 20110524
  Receipt Date: 20110519
  Transmission Date: 20111010
  Serious: Yes (Other)
  Sender: FDA-Public Use
  Company Number: US-ROCHE-634569

PATIENT
  Age: 46 Year
  Sex: Male

DRUGS (4)
  1. VALCYTE [Suspect]
     Dosage: OTHER INDICATION: HIV
     Route: 048
     Dates: start: 20090201
  2. ISENTRESS [Concomitant]
  3. COMBIVIR [Interacting]
     Route: 065
  4. ETRAVIRINE [Concomitant]

REACTIONS (2)
  - T-LYMPHOCYTE COUNT DECREASED [None]
  - DRUG INTERACTION [None]
